FAERS Safety Report 4448755-4 (Version None)
Quarter: 2004Q3

REPORT INFORMATION
  Report Type: 
  Country: None (occurrence: None)
  Receive Date: 20040909
  Receipt Date: 20040909
  Transmission Date: 20050211
  Serious: Yes (Hospitalization)
  Sender: FDA-Public Use
  Company Number: None

PATIENT
  Age: 81 Year
  Sex: Male
  Weight: 87 kg

DRUGS (13)
  1. BACTRIM [Suspect]
     Indication: PERTUSSIS
     Dosage: 800MG/160MG  TWICE DAIL   ORAL
     Route: 048
     Dates: start: 20040713, end: 20040717
  2. BACTRIM [Suspect]
     Indication: PROPHYLAXIS
     Dosage: 800MG/160MG  TWICE DAIL   ORAL
     Route: 048
     Dates: start: 20040713, end: 20040717
  3. ATORVASTATIN CALCIUM [Concomitant]
  4. LISINOPRIL [Concomitant]
  5. ASPIRIN [Concomitant]
  6. M.V.I. [Concomitant]
  7. FUROSEMIDE [Concomitant]
  8. KCL TAB [Concomitant]
  9. GLIMEPIRIDE [Concomitant]
  10. OMEPRAZOLE [Concomitant]
  11. URECHOLINE [Concomitant]
  12. METFORMIN [Concomitant]
  13. AMITRIPTYLINE HCL [Concomitant]

REACTIONS (5)
  - ANOREXIA [None]
  - ASTHENIA [None]
  - COLD SWEAT [None]
  - HYPERKALAEMIA [None]
  - RENAL FAILURE ACUTE [None]
